FAERS Safety Report 25107440 (Version 3)
Quarter: 2025Q3

REPORT INFORMATION
  Report Type: Spontaneous
  Country: JP (occurrence: JP)
  Receive Date: 20250321
  Receipt Date: 20250804
  Transmission Date: 20251020
  Serious: Yes (Hospitalization, Other)
  Sender: MERCK SHARP & DOHME LLC
  Company Number: JP-MSD-M2024-44066

PATIENT

DRUGS (3)
  1. KEYTRUDA [Suspect]
     Active Substance: PEMBROLIZUMAB
     Indication: Bile duct cancer stage IV
     Dosage: DOSAGE: 5 COURSES.
     Route: 041
     Dates: start: 20241016
  2. GEMCITABINE HYDROCHLORIDE [Concomitant]
     Active Substance: GEMCITABINE HYDROCHLORIDE
     Dosage: DOSE DESCRIPTION : 1000 MILLIGRAM/SQ. METER, Q3W?DAILY DOSE : 47 MILLIGRAM/SQ. METER?REGIMEN DOSE...
     Route: 041
     Dates: start: 20241016
  3. CISPLATIN [Concomitant]
     Active Substance: CISPLATIN
     Dosage: DOSE DESCRIPTION : 25 MILLIGRAM/SQ. METER, Q3W?DAILY DOSE : 1.175 MILLIGRAM/SQ. METER?REGIMEN DOS...
     Route: 065
     Dates: start: 20241016

REACTIONS (1)
  - Cholecystitis [Recovered/Resolved]

NARRATIVE: CASE EVENT DATE: 20241025
